FAERS Safety Report 24083221 (Version 1)
Quarter: 2024Q3

REPORT INFORMATION
  Report Type: Spontaneous
  Country: FR (occurrence: FR)
  Receive Date: 20240712
  Receipt Date: 20240712
  Transmission Date: 20241016
  Serious: Yes (Other)
  Sender: ALK-ABELLO
  Company Number: FR-ALK-ABELLO A/S-2024AA002810

PATIENT

DRUGS (1)
  1. ACARIZAX [Suspect]
     Active Substance: DERMATOPHAGOIDES FARINAE\DERMATOPHAGOIDES PTERONYSSINUS
     Indication: Immune tolerance induction
     Dosage: UNK
     Route: 060
     Dates: start: 202310

REACTIONS (2)
  - Labyrinthitis [Unknown]
  - Ear infection [Unknown]
